FAERS Safety Report 13569780 (Version 1)
Quarter: 2017Q2

REPORT INFORMATION
  Report Type: Spontaneous
  Country: CH (occurrence: CH)
  Receive Date: 20170522
  Receipt Date: 20170522
  Transmission Date: 20170830
  Serious: Yes (Hospitalization)
  Sender: FDA-Public Use
  Company Number: CH-ELI_LILLY_AND_COMPANY-CH201705006858

PATIENT
  Age: 65 Year
  Sex: Female

DRUGS (29)
  1. PARAPLATIN [Suspect]
     Active Substance: CARBOPLATIN
     Dosage: 600 MG, UNKNOWN
     Route: 042
     Dates: start: 20170328
  2. CALCIMAGON D3 [Concomitant]
     Active Substance: CALCIUM\CHOLECALCIFEROL
     Dosage: UNK UNK, UNKNOWN
     Route: 065
  3. DAFALGAN [Concomitant]
     Active Substance: ACETAMINOPHEN
     Dosage: UNK UNK, UNKNOWN
     Route: 065
  4. LAXOBERON [Concomitant]
     Active Substance: SODIUM PICOSULFATE
     Dosage: UNK UNK, UNKNOWN
     Route: 065
  5. METOLAZON [Concomitant]
     Active Substance: METOLAZONE
     Dosage: UNK UNK, UNKNOWN
     Route: 065
  6. PREDNISON GALEPHARM [Concomitant]
     Active Substance: PREDNISONE
     Dosage: UNK UNK, UNKNOWN
     Route: 065
  7. FRAGMIN [Concomitant]
     Active Substance: DALTEPARIN SODIUM
     Dosage: UNK UNK, UNKNOWN
     Route: 065
  8. HYDROMORPHONE HCL [Concomitant]
     Active Substance: HYDROMORPHONE HYDROCHLORIDE
     Dosage: UNK UNK, UNKNOWN
     Route: 065
  9. KCL HAUSMANN [Concomitant]
     Dosage: UNK UNK, UNKNOWN
     Route: 065
  10. METHADONE [Concomitant]
     Active Substance: METHADONE HYDROCHLORIDE
     Dosage: UNK UNK, UNKNOWN
     Route: 065
  11. PARAGAR                            /01725301/ [Concomitant]
     Dosage: UNK UNK, UNKNOWN
     Route: 065
  12. SYMBICORT [Concomitant]
     Active Substance: BUDESONIDE\FORMOTEROL FUMARATE DIHYDRATE
     Dosage: UNK UNK, UNKNOWN
     Route: 065
  13. ANDREAFOL [Concomitant]
     Dosage: .4 MG, DAILY
     Route: 065
  14. FERRUM HAUSMANN                    /00023505/ [Concomitant]
     Dosage: UNK UNK, UNKNOWN
     Route: 065
  15. DULCOLAX (BISACODYL) [Concomitant]
     Active Substance: BISACODYL
     Dosage: UNK UNK, UNKNOWN
     Route: 065
  16. VENTOLIN [Concomitant]
     Active Substance: ALBUTEROL SULFATE
     Dosage: UNK UNK, UNKNOWN
     Route: 065
  17. ALIMTA [Suspect]
     Active Substance: PEMETREXED DISODIUM
     Dosage: 850 MG, UNKNOWN
     Route: 042
     Dates: start: 20170213
  18. NOVALGIN [Concomitant]
     Active Substance: METAMIZOLE SODIUM
     Dosage: 500 MG, QID
     Route: 065
  19. ALDACTONE [Concomitant]
     Active Substance: SPIRONOLACTONE
     Dosage: 25 MG, DAILY
     Route: 065
  20. CITALOPRAM [Concomitant]
     Active Substance: CITALOPRAM HYDROBROMIDE
     Dosage: UNK UNK, UNKNOWN
     Route: 065
  21. PASPERTIN                          /00041902/ [Concomitant]
     Active Substance: METOCLOPRAMIDE HYDROCHLORIDE
     Dosage: UNK UNK, UNKNOWN
     Route: 065
  22. ALIMTA [Suspect]
     Active Substance: PEMETREXED DISODIUM
     Indication: LUNG ADENOCARCINOMA
     Dosage: 850 MG, UNKNOWN
     Route: 042
     Dates: start: 20170119
  23. PALLADON [Concomitant]
     Active Substance: HYDROMORPHONE
     Dosage: UNK UNK, UNKNOWN
     Route: 065
  24. TOREM                              /01036501/ [Concomitant]
     Active Substance: TORSEMIDE
     Dosage: UNK UNK, UNKNOWN
     Route: 065
  25. PARAPLATIN [Suspect]
     Active Substance: CARBOPLATIN
     Indication: LUNG ADENOCARCINOMA
     Dosage: 600 MG, UNKNOWN
     Route: 042
     Dates: start: 20170119
  26. PARAPLATIN [Suspect]
     Active Substance: CARBOPLATIN
     Dosage: 600 MG, UNKNOWN
     Route: 042
     Dates: start: 20170213
  27. ALIMTA [Suspect]
     Active Substance: PEMETREXED DISODIUM
     Dosage: 850 MG, UNKNOWN
     Route: 042
     Dates: start: 20170328
  28. TEMESTA EXPIDET [Concomitant]
     Active Substance: LORAZEPAM
     Dosage: UNK UNK, UNKNOWN
     Route: 065
  29. IPRAMOL [Concomitant]
     Active Substance: ALBUTEROL SULFATE\IPRATROPIUM BROMIDE
     Dosage: UNK UNK, UNKNOWN
     Route: 065

REACTIONS (6)
  - Normochromic normocytic anaemia [Recovering/Resolving]
  - Thrombocytopenia [Recovered/Resolved]
  - Neutropenic sepsis [Recovered/Resolved]
  - Neutropenia [Recovered/Resolved]
  - Melaena [Recovering/Resolving]
  - Leukopenia [Recovered/Resolved]

NARRATIVE: CASE EVENT DATE: 20170221
